FAERS Safety Report 9173645 (Version 1)
Quarter: 2013Q1

REPORT INFORMATION
  Report Type: Spontaneous
  Country: US (occurrence: None)
  Receive Date: 20130313
  Receipt Date: 20130313
  Transmission Date: 20140127
  Serious: No
  Sender: FDA-Public Use
  Company Number: AEUSA201200463

PATIENT
  Age: 63 Year
  Sex: Male
  Weight: 92.08 kg

DRUGS (1)
  1. PROLASTIN-C [Suspect]
     Indication: ALPHA-1 ANTI-TRYPSIN DEFICIENCY
     Route: 042
     Dates: start: 20100729, end: 20120927

REACTIONS (9)
  - Headache [None]
  - Arthralgia [None]
  - Joint swelling [None]
  - Dizziness [None]
  - Palpitations [None]
  - Pain [None]
  - Musculoskeletal pain [None]
  - Pain in extremity [None]
  - Blood creatine phosphokinase increased [None]
